FAERS Safety Report 14763660 (Version 2)
Quarter: 2018Q2

REPORT INFORMATION
  Report Type: Spontaneous
  Country: US (occurrence: US)
  Receive Date: 20180416
  Receipt Date: 20180418
  Transmission Date: 20180711
  Serious: Yes (Other)
  Sender: FDA-Public Use
  Company Number: US-PFIZER INC-2018152433

PATIENT
  Age: 32 Year
  Sex: Male

DRUGS (10)
  1. VINBLASTIN [Suspect]
     Active Substance: VINBLASTINE
     Indication: HODGKIN^S DISEASE STAGE II
     Dosage: 4 MG/M2, CYCLIC (ALTERNATE CYCLES, NINE CYCLES OF CHEMOTHERAPY)
     Dates: end: 198811
  2. LOMUSTINE. [Suspect]
     Active Substance: LOMUSTINE
     Indication: HODGKIN^S DISEASE STAGE II
     Dosage: 100 MG/M2, CYCLIC (ALTERNATE CYCLES, NINE CYCLES OF CHEMOTHERAPY)
     Dates: end: 198811
  3. ALKERAN [Suspect]
     Active Substance: MELPHALAN
     Indication: HODGKIN^S DISEASE STAGE II
     Dosage: 6 MG/M2, CYCLIC (ALTERNATE CYCLES, NINE CYCLES OF CHEMOTHERAPY)
     Dates: end: 198811
  4. MECHLORETHAMINE [Suspect]
     Active Substance: MECHLORETHAMINE
     Indication: HODGKIN^S DISEASE STAGE II
     Dosage: 6 MG/M2, CYCLIC (ALTERNATE CYCLES, NINE CYCLES OF CHEMOTHERAPY)
     Dates: end: 198811
  5. VINCRISTINE SULFATE. [Suspect]
     Active Substance: VINCRISTINE SULFATE
     Indication: HODGKIN^S DISEASE STAGE II
     Dosage: 1.4 MG/M2, CYCLIC (ALTERNATE CYCLES, NINE CYCLES OF CHEMOTHERAPY)
     Dates: end: 198811
  6. BLEOMYCIN SULFATE [Suspect]
     Active Substance: BLEOMYCIN SULFATE
     Indication: HODGKIN^S DISEASE STAGE II
     Dosage: UNK, CYCLIC (6 U/M^2, ALTERNATE CYCLES, NINE CYCLES OF CHEMOTHERAPY)
     Dates: end: 198811
  7. PROCARBAZINE [Suspect]
     Active Substance: PROCARBAZINE
     Indication: HODGKIN^S DISEASE STAGE II
     Dosage: 100 MG/M2, CYCLIC (ALTERNATE CYCLES, NINE CYCLES OF CHEMOTHERAPY)
     Dates: end: 198811
  8. DOXORUBICIN HCL [Suspect]
     Active Substance: DOXORUBICIN HYDROCHLORIDE
     Indication: HODGKIN^S DISEASE STAGE II
     Dosage: 25 MG/M2, CYCLIC (ALTERNATE CYCLES, NINE CYCLES OF CHEMOTHERAPY)
     Dates: end: 198811
  9. PREDNISONE. [Suspect]
     Active Substance: PREDNISONE
     Indication: HODGKIN^S DISEASE STAGE II
     Dosage: 40 MG/M2, CYCLIC (ALTERNATE CYCLES, NINE CYCLES OF CHEMOTHERAPY)
     Dates: end: 198811
  10. VINBLASTIN [Suspect]
     Active Substance: VINBLASTINE
     Dosage: 6 MG/M2, CYCLIC (ALTERNATE CYCLES, NINE CYCLES OF CHEMOTHERAPY)
     Dates: end: 198811

REACTIONS (2)
  - Chronic myeloid leukaemia [Recovering/Resolving]
  - Second primary malignancy [Recovering/Resolving]
